FAERS Safety Report 25175228 (Version 1)
Quarter: 2025Q2

REPORT INFORMATION
  Report Type: Spontaneous
  Country: CN (occurrence: CN)
  Receive Date: 20250408
  Receipt Date: 20250408
  Transmission Date: 20250716
  Serious: Yes (Other)
  Sender: ROCHE
  Company Number: CN-ROCHE-10000252976

PATIENT
  Age: 57 Year
  Sex: Female
  Weight: 43 kg

DRUGS (6)
  1. OBINUTUZUMAB [Suspect]
     Active Substance: OBINUTUZUMAB
     Indication: Mantle cell lymphoma
     Route: 042
     Dates: start: 20250326, end: 20250326
  2. POLATUZUMAB VEDOTIN [Suspect]
     Active Substance: POLATUZUMAB VEDOTIN
     Indication: Mantle cell lymphoma
     Route: 042
     Dates: start: 20250326, end: 20250326
  3. SODIUM CHLORIDE [Concomitant]
     Active Substance: SODIUM CHLORIDE
     Route: 042
     Dates: start: 20250326
  4. SODIUM CHLORIDE [Concomitant]
     Active Substance: SODIUM CHLORIDE
     Route: 042
     Dates: start: 20250326, end: 20250326
  5. STERILE WATER FOR INJECTION [Concomitant]
     Active Substance: WATER
     Route: 042
     Dates: start: 20250326, end: 20250326
  6. Human Granulocyte Colonystimulating Factor [Concomitant]
     Route: 042

REACTIONS (2)
  - White blood cell count decreased [Recovering/Resolving]
  - Off label use [Unknown]

NARRATIVE: CASE EVENT DATE: 20250329
